FAERS Safety Report 6692714-8 (Version None)
Quarter: 2010Q2

REPORT INFORMATION
  Report Type: 
  Country: None (occurrence: None)
  Receive Date: 20100422
  Receipt Date: 20100413
  Transmission Date: 20101027
  Serious: Yes (Hospitalization, Other)
  Sender: FDA-Public Use
  Company Number: IE-PFIZER INC-2010034123

PATIENT
  Age: 32 Year
  Sex: Male
  Weight: 88.88 kg

DRUGS (1)
  1. CLINDAMYCIN HCL [Suspect]
     Indication: OSTEOMYELITIS
     Dosage: 900 MG, 3X/DAY
     Route: 042
     Dates: start: 20100305, end: 20100313

REACTIONS (6)
  - CHEST PAIN [None]
  - DIARRHOEA [None]
  - HYPOTONIA [None]
  - PHARYNGITIS [None]
  - SYNCOPE [None]
  - UNRESPONSIVE TO STIMULI [None]
